FAERS Safety Report 12283693 (Version 1)
Quarter: 2016Q2

REPORT INFORMATION
  Report Type: Spontaneous
  Country: TR (occurrence: TR)
  Receive Date: 20160419
  Receipt Date: 20160419
  Transmission Date: 20160815
  Serious: Yes (Other)
  Sender: FDA-Public Use
  Company Number: TR-EAGLE PHARMACEUTICALS, INC.-ELL201604-000104

PATIENT
  Sex: Male

DRUGS (2)
  1. DICLOFENAC SODIUM AND MISOPROSTOL [Suspect]
     Active Substance: DICLOFENAC SODIUM\MISOPROSTOL
     Indication: GOUT
     Route: 030
  2. DICLOFENAC SODIUM AND MISOPROSTOL [Suspect]
     Active Substance: DICLOFENAC SODIUM\MISOPROSTOL
     Route: 048

REACTIONS (2)
  - Rhabdomyolysis [Unknown]
  - Rash erythematous [Unknown]
